FAERS Safety Report 7383375-3 (Version None)
Quarter: 2011Q1

REPORT INFORMATION
  Report Type: 
  Country: None (occurrence: None)
  Receive Date: 20110330
  Receipt Date: 20101019
  Transmission Date: 20110831
  Serious: Yes (Hospitalization)
  Sender: FDA-Public Use
  Company Number: US-BAYER-201026860NA

PATIENT
  Sex: Female
  Weight: 84.091 kg

DRUGS (23)
  1. YASMIN [Suspect]
     Indication: DYSMENORRHOEA
  2. YASMIN [Suspect]
     Indication: PREMENSTRUAL SYNDROME
  3. LEVOXYL [Concomitant]
     Indication: THYROID DISORDER
     Dosage: 200 ?G (DAILY DOSE), ,
  4. UNCODEABLE ^UNCLASSIFIABLE^ [Concomitant]
     Indication: BACK PAIN
     Dates: start: 20050901
  5. ZYRTEC-D 12 HOUR [Concomitant]
     Dosage: 1 TAB DAILY
  6. FOSAMAX [Concomitant]
     Indication: OSTEOPENIA
  7. AMITRIPTYLINE [Concomitant]
  8. VISTARIL [Concomitant]
     Indication: HEADACHE
  9. ADVIL LIQUI-GELS [Concomitant]
  10. YASMIN [Suspect]
     Indication: CONTRACEPTION
     Route: 048
     Dates: start: 20030101, end: 20050101
  11. SYNTHROID [Concomitant]
     Indication: THYROID DISORDER
  12. IBUPROFEN [Concomitant]
     Indication: PAIN
  13. MOBIC [Concomitant]
  14. LEVAQUIN [Concomitant]
     Dosage: 500 MG (DAILY DOSE), ,
  15. UNCODEABLE ^UNCLASSIFIABLE^ [Concomitant]
  16. RESPIRATORY SYSTEM [Concomitant]
     Indication: SINUS CONGESTION
  17. OXYCONTIN [Concomitant]
  18. TOPAMAX [Concomitant]
     Dosage: 2 TABS DAILY
  19. PHENTERMINE [Concomitant]
     Dosage: 15 MG (DAILY DOSE), ,
  20. STADOL [Concomitant]
     Indication: HEADACHE
     Route: 045
  21. ALLEGRA D 24 HOUR [Concomitant]
  22. DURAPHEN FORTE [Concomitant]
     Indication: PULMONARY CONGESTION
     Dosage: ONE TAB Q12H
  23. LORTAB [Concomitant]
     Dosage: 10 MG Q4H

REACTIONS (4)
  - THROMBOSIS [None]
  - DEEP VEIN THROMBOSIS [None]
  - PAIN IN EXTREMITY [None]
  - DEPRESSION [None]
